FAERS Safety Report 14665310 (Version 23)
Quarter: 2019Q2

REPORT INFORMATION
  Report Type: Spontaneous
  Country: CA (occurrence: CA)
  Receive Date: 20180321
  Receipt Date: 20190625
  Transmission Date: 20190711
  Serious: Yes (Other)
  Sender: FDA-Public Use
  Company Number: CA-CELLTRION INC.-2018CA018639

PATIENT

DRUGS (33)
  1. INFLECTRA [Suspect]
     Active Substance: INFLIXIMAB-DYYB
     Dosage: 10 MG/KG, EVERY 6WEEKS THEN EVERY 8 WEEKS
     Route: 042
     Dates: start: 20180405, end: 20180405
  2. INFLECTRA [Suspect]
     Active Substance: INFLIXIMAB-DYYB
     Dosage: 10 MG/KG, EVERY 4 WEEKS
     Route: 042
     Dates: start: 20181017, end: 20181017
  3. INFLECTRA [Suspect]
     Active Substance: INFLIXIMAB-DYYB
     Dosage: 10 MG/KG, EVERY 4 WEEKS
     Route: 042
     Dates: start: 20181114, end: 20181114
  4. INFLECTRA [Suspect]
     Active Substance: INFLIXIMAB-DYYB
     Dosage: 5 MG/KG, 0, 2, 6, THEN EVERY 8 WEEKS
     Route: 042
     Dates: start: 20180308, end: 20180308
  5. INFLECTRA [Suspect]
     Active Substance: INFLIXIMAB-DYYB
     Dosage: 10 MG/KG, EVERY 6WEEKS THEN EVERY 8 WEEKS
     Route: 042
     Dates: start: 20180628, end: 20180724
  6. NUTRICAP [Concomitant]
     Dosage: 2 DF (CAPSULES), 1X/DAY
     Route: 048
  7. HYDROMORPH [Concomitant]
     Active Substance: HYDROMORPHONE
     Indication: COLITIS ULCERATIVE
     Dosage: 1 MG, AS 1-2 TABS EVERY 4 HOURS AS NEEDED
     Route: 048
  8. DIPHENHYDRAMINE. [Concomitant]
     Active Substance: DIPHENHYDRAMINE
     Dosage: 50 MG, UNK
     Route: 048
  9. ACETAMINOPHEN. [Concomitant]
     Active Substance: ACETAMINOPHEN
     Dosage: 650 MG, UNK
     Route: 048
  10. INFLECTRA [Suspect]
     Active Substance: INFLIXIMAB-DYYB
     Dosage: 10 MG/KG, EVERY 6WEEKS THEN EVERY 8 WEEKS
     Route: 042
     Dates: start: 20180517, end: 20180517
  11. INFLECTRA [Suspect]
     Active Substance: INFLIXIMAB-DYYB
     Dosage: 10 MG/KG, EVERY 4 WEEKS
     Route: 042
     Dates: start: 20181212, end: 20181212
  12. ZOPICLONE [Concomitant]
     Active Substance: ZOPICLONE
     Dosage: 5 MG HS (BEDTIME)
  13. BENADRYL [Concomitant]
     Active Substance: DIPHENHYDRAMINE HYDROCHLORIDE
     Indication: PREMEDICATION
     Dosage: UNK
     Dates: start: 20190206, end: 20190206
  14. IRON [Concomitant]
     Active Substance: IRON
     Dosage: UNK, 1X/DAY (ONCE DAILY)
  15. INFLECTRA [Suspect]
     Active Substance: INFLIXIMAB-DYYB
     Dosage: 10 MG/KG, EVERY 4 WEEKS
     Route: 042
     Dates: start: 20180822, end: 20180822
  16. VIT D [Concomitant]
     Active Substance: VITAMIN D NOS
     Dosage: 1000 IU, 1X/DAY
  17. HYDROMORPH [Concomitant]
     Active Substance: HYDROMORPHONE
     Dosage: UNK, AS NEEDED (1 TO 2 MG; EVERY 4-6 HOURS PRN)
  18. OXYCODONE [Concomitant]
     Active Substance: OXYCODONE
     Indication: COLITIS ULCERATIVE
     Dosage: 5 MG, AS NEEDED DURING THE NIGHT
     Route: 048
  19. INFLECTRA [Suspect]
     Active Substance: INFLIXIMAB-DYYB
     Dosage: 10 MG/KG, EVERY 4 WEEKS
     Route: 042
     Dates: start: 20181114, end: 20181114
  20. INFLECTRA [Suspect]
     Active Substance: INFLIXIMAB-DYYB
     Dosage: 10 MG/KG, EVERY 4 WEEKS
     Route: 042
     Dates: start: 20190109, end: 20190109
  21. INFLECTRA [Suspect]
     Active Substance: INFLIXIMAB-DYYB
     Dosage: 10 MG/KG, EVERY 4 WEEKS
     Route: 042
     Dates: start: 20190402
  22. CORTISONE [Concomitant]
     Active Substance: CORTISONE\HYDROCORTISONE
     Dosage: EVERY 4-6 MONTHS
  23. DIPHENHYDRAMINE. [Concomitant]
     Active Substance: DIPHENHYDRAMINE
     Dosage: 50 UNK, UNK
     Route: 048
     Dates: start: 20190430, end: 20190430
  24. ACETAMINOPHEN. [Concomitant]
     Active Substance: ACETAMINOPHEN
     Dosage: 650 UNK, UNK
     Route: 048
     Dates: start: 20190430, end: 20190430
  25. INFLECTRA [Suspect]
     Active Substance: INFLIXIMAB-DYYB
     Dosage: 10 MG/KG, EVERY 4 WEEKS
     Route: 042
     Dates: start: 20180919, end: 20180919
  26. INFLECTRA [Suspect]
     Active Substance: INFLIXIMAB-DYYB
     Dosage: 10 MG/KG, EVERY 4 WEEKS
     Route: 042
     Dates: start: 20190206
  27. INFLECTRA [Suspect]
     Active Substance: INFLIXIMAB-DYYB
     Dosage: 10 MG/KG, EVERY 4 WEEKS
     Route: 042
     Dates: start: 20190305
  28. FERROUS [Concomitant]
     Active Substance: IRON
     Dosage: 300 MG(1 TABLET), 2X/DAY
     Route: 048
  29. INFLECTRA [Suspect]
     Active Substance: INFLIXIMAB-DYYB
     Indication: COLITIS ULCERATIVE
     Dosage: 5 MG/KG, 0, 2, 6, THEN EVERY 8 WEEKS
     Route: 042
     Dates: start: 20180222
  30. INFLECTRA [Suspect]
     Active Substance: INFLIXIMAB-DYYB
     Dosage: 10 MG/KG, EVERY 4 WEEKS
     Route: 042
     Dates: start: 20190430
  31. SYNTHROID [Concomitant]
     Active Substance: LEVOTHYROXINE SODIUM
     Dosage: 0.137 MG, UNK
  32. CALCIUM [Concomitant]
     Active Substance: CALCIUM
     Dosage: 500 MG, 2X/DAY
  33. HYDROMORPH [Concomitant]
     Active Substance: HYDROMORPHONE
     Dosage: 1 TO 2 MG, Q (EVERY) 4 HOURS (6X/DAY) PRN (AS NEEDED)
     Route: 048

REACTIONS (20)
  - Back pain [Not Recovered/Not Resolved]
  - Localised oedema [Unknown]
  - Influenza [Recovering/Resolving]
  - Product use issue [Unknown]
  - Splenic infarction [Unknown]
  - Vision blurred [Unknown]
  - Erythema [Not Recovered/Not Resolved]
  - Product use issue [Unknown]
  - Condition aggravated [Recovered/Resolved]
  - Haemorrhoids [Unknown]
  - Nausea [Not Recovered/Not Resolved]
  - Nasopharyngitis [Recovered/Resolved]
  - Psoriasis [Not Recovered/Not Resolved]
  - Headache [Not Recovered/Not Resolved]
  - Heart rate irregular [Unknown]
  - Pruritus [Recovering/Resolving]
  - Weight increased [Unknown]
  - Drug ineffective [Recovered/Resolved]
  - Fatigue [Unknown]
  - Blood pressure fluctuation [Unknown]

NARRATIVE: CASE EVENT DATE: 2018
